FAERS Safety Report 24792875 (Version 1)
Quarter: 2024Q4

REPORT INFORMATION
  Report Type: Spontaneous
  Country: NP (occurrence: NP)
  Receive Date: 20241231
  Receipt Date: 20241231
  Transmission Date: 20250115
  Serious: Yes (Life-Threatening, Hospitalization, Other)
  Sender: JUBILANT
  Company Number: None

PATIENT
  Age: 5 Year
  Sex: Male
  Weight: 18 kg

DRUGS (1)
  1. OLANZAPINE [Suspect]
     Active Substance: OLANZAPINE
     Indication: Product used for unknown indication
     Dosage: 180 MG, TOTAL (PATIENT CONSUMED 12 TABLETS OF 15 MG EACH (180 MG TOTAL) (HIGH-DOSE). THE PATIENT^S F
     Route: 048

REACTIONS (15)
  - Accidental overdose [Recovering/Resolving]
  - Aggression [Recovering/Resolving]
  - Depressed level of consciousness [Recovering/Resolving]
  - Miosis [Recovering/Resolving]
  - Hyperglycaemia [Recovering/Resolving]
  - Blood lactic acid increased [Recovering/Resolving]
  - Prothrombin time prolonged [Recovering/Resolving]
  - Blood chloride increased [Recovering/Resolving]
  - Neutrophilia [Recovering/Resolving]
  - Lymphopenia [Recovering/Resolving]
  - Anaemia [Recovering/Resolving]
  - Red blood cell count decreased [Recovering/Resolving]
  - Agitation [Recovering/Resolving]
  - Respiratory disorder [Recovering/Resolving]
  - Accidental exposure to product by child [Recovered/Resolved]
